FAERS Safety Report 8387288-X (Version None)
Quarter: 2012Q2

REPORT INFORMATION
  Report Type: 
  Country: None (occurrence: None)
  Receive Date: 20120525
  Receipt Date: 20120521
  Transmission Date: 20120825
  Serious: Yes (Hospitalization)
  Sender: FDA-Public Use
  Company Number: NL-ROCHE-1071064

PATIENT
  Age: 7 Year
  Sex: Male

DRUGS (3)
  1. MABTHERA [Suspect]
     Indication: BURKITT'S LYMPHOMA
     Route: 042
     Dates: start: 20120516
  2. BACTRIMEL [Concomitant]
     Indication: PROPHYLAXIS
  3. CYCLOSPORINE [Concomitant]

REACTIONS (1)
  - BLOOD CREATININE INCREASED [None]
